FAERS Safety Report 9690423 (Version 2)
Quarter: 2013Q4

REPORT INFORMATION
  Report Type: Spontaneous
  Country: US (occurrence: US)
  Receive Date: 20131115
  Receipt Date: 20131223
  Transmission Date: 20140711
  Serious: No
  Sender: FDA-Public Use
  Company Number: US-009507513-1311USA005255

PATIENT
  Sex: Female
  Weight: 107.3 kg

DRUGS (2)
  1. NEXPLANON [Suspect]
     Dosage: 1 UNK, UNK
     Route: 059
     Dates: start: 201302, end: 20131109
  2. NEXPLANON [Suspect]
     Dosage: 2 UNK, UNK
     Route: 059
     Dates: start: 2013

REACTIONS (1)
  - Device breakage [Recovered/Resolved]
